FAERS Safety Report 16222207 (Version 2)
Quarter: 2019Q2

REPORT INFORMATION
  Report Type: Report from Study
  Country: BR (occurrence: BR)
  Receive Date: 20190422
  Receipt Date: 20190603
  Transmission Date: 20190711
  Serious: Yes (Other)
  Sender: FDA-Public Use
  Company Number: BR-SA-2017SA208026

PATIENT
  Age: 56 Year
  Sex: Female
  Weight: 56 kg

DRUGS (7)
  1. PHENOBARBITAL. [Concomitant]
     Active Substance: PHENOBARBITAL
     Indication: SEIZURE
     Dosage: UNK UNK, UNK
     Route: 065
  2. PROPRANOLOL [Concomitant]
     Active Substance: PROPRANOLOL HYDROCHLORIDE
     Indication: ARRHYTHMIA
     Dosage: UNK UNK, UNK
     Route: 065
  3. PREGABALIN. [Suspect]
     Active Substance: PREGABALIN
     Indication: POST HERPETIC NEURALGIA
     Dosage: 75 MG, BID
     Route: 065
  4. ALEMTUZUMAB [Suspect]
     Active Substance: ALEMTUZUMAB
     Dosage: UNK UNK,UNK
     Route: 041
     Dates: start: 20170908, end: 20170910
  5. PREGABALIN. [Suspect]
     Active Substance: PREGABALIN
     Dosage: 75 MG, QD
     Route: 065
  6. ALEMTUZUMAB [Suspect]
     Active Substance: ALEMTUZUMAB
     Indication: MULTIPLE SCLEROSIS
     Dosage: UNK UNK (3)
     Route: 041
     Dates: start: 20160822
  7. CODEINE PHOSPHATE/PARACETAMOL [Suspect]
     Active Substance: ACETAMINOPHEN\CODEINE PHOSPHATE
     Indication: HERPES ZOSTER DISSEMINATED
     Dosage: UNK
     Route: 065
     Dates: start: 20190223

REACTIONS (38)
  - Intestinal polyp [Recovering/Resolving]
  - Post herpetic neuralgia [Recovering/Resolving]
  - Chills [Not Recovered/Not Resolved]
  - Blood pressure decreased [Recovering/Resolving]
  - Erythema [Recovered/Resolved]
  - Wound secretion [Recovering/Resolving]
  - Inflammation of wound [Recovering/Resolving]
  - Vomiting [Not Recovered/Not Resolved]
  - Paraesthesia [Recovered/Resolved]
  - Onychalgia [Recovering/Resolving]
  - Herpes zoster disseminated [Recovering/Resolving]
  - Nasal congestion [Not Recovered/Not Resolved]
  - Cold sweat [Not Recovered/Not Resolved]
  - Nervousness [Not Recovered/Not Resolved]
  - Musculoskeletal stiffness [Recovered/Resolved]
  - Serum ferritin decreased [Unknown]
  - Pruritus [Recovered/Resolved]
  - Burning sensation [Recovering/Resolving]
  - Immunodeficiency [Recovering/Resolving]
  - Haemorrhoids [Not Recovered/Not Resolved]
  - Therapeutic procedure [Unknown]
  - Weight decreased [Recovering/Resolving]
  - Hyperhidrosis [Not Recovered/Not Resolved]
  - Herpes zoster [Recovering/Resolving]
  - Feeling hot [Not Recovered/Not Resolved]
  - Abdominal pain [Not Recovered/Not Resolved]
  - Dizziness [Recovering/Resolving]
  - Hypoaesthesia [Recovered/Resolved]
  - Arrhythmia [Not Recovered/Not Resolved]
  - Pain [Recovering/Resolving]
  - Lymphocyte count decreased [Recovered/Resolved]
  - Somnolence [Recovering/Resolving]
  - Swelling [Recovered/Resolved]
  - Nausea [Not Recovered/Not Resolved]
  - Asthenia [Not Recovered/Not Resolved]
  - Fatigue [Recovering/Resolving]
  - Alopecia [Unknown]
  - Sadism [Not Recovered/Not Resolved]

NARRATIVE: CASE EVENT DATE: 2017
